FAERS Safety Report 24278538 (Version 1)
Quarter: 2024Q3

REPORT INFORMATION
  Report Type: Report from Study
  Country: GR (occurrence: GR)
  Receive Date: 20240903
  Receipt Date: 20240903
  Transmission Date: 20241016
  Serious: Yes (Other)
  Sender: TAKEDA
  Company Number: GR-TAKEDA-2024TUS087960

PATIENT
  Age: 71 Year
  Sex: Female

DRUGS (2)
  1. HUMAN IMMUNOGLOBULIN G\HYALURONIDASE RECOMBINANT HUMAN [Suspect]
     Active Substance: HUMAN IMMUNOGLOBULIN G\HYALURONIDASE (HUMAN RECOMBINANT)
     Indication: Immunodeficiency
     Dosage: 300 MILLILITER, MONTHLY
     Route: 050
     Dates: start: 20230823
  2. DEPREVIX [Concomitant]
     Dosage: 225 MILLIGRAM, QD
     Route: 065

REACTIONS (3)
  - Coronary artery occlusion [Unknown]
  - Abdominal distension [Recovered/Resolved]
  - Pyrexia [Recovered/Resolved]
